FAERS Safety Report 16296305 (Version 1)
Quarter: 2019Q2

REPORT INFORMATION
  Report Type: Spontaneous
  Country: US (occurrence: US)
  Receive Date: 20190405
  Receipt Date: 20190405
  Transmission Date: 20190711
  Serious: No
  Sender: FDA-Public Use
  Company Number: None

PATIENT
  Sex: Female

DRUGS (7)
  1. VIT D [Concomitant]
     Active Substance: VITAMIN D NOS
  2. OMPRAZOLE [Concomitant]
     Active Substance: OMEPRAZOLE
  3. URSODIOL. [Concomitant]
     Active Substance: URSODIOL
  4. OCALIVA [Suspect]
     Active Substance: OBETICHOLIC ACID
     Indication: PRIMARY BILIARY CHOLANGITIS
     Route: 048
     Dates: start: 20190322
  5. TRAZODONE [Suspect]
     Active Substance: TRAZODONE HYDROCHLORIDE
  6. ONDANSETRON [Concomitant]
     Active Substance: ONDANSETRON
  7. ALBUTEROL. [Concomitant]
     Active Substance: ALBUTEROL

REACTIONS (2)
  - Fatigue [None]
  - Pruritus [None]

NARRATIVE: CASE EVENT DATE: 2019
